FAERS Safety Report 22521288 (Version 2)
Quarter: 2023Q2

REPORT INFORMATION
  Report Type: Report from Study
  Country: EG (occurrence: None)
  Receive Date: 20230605
  Receipt Date: 20230612
  Transmission Date: 20230722
  Serious: Yes (Disabling)
  Sender: FDA-Public Use
  Company Number: EG-Merck Healthcare KGaA-9406398

PATIENT
  Age: 26 Year
  Sex: Female

DRUGS (1)
  1. REBIF [Suspect]
     Active Substance: INTERFERON BETA-1A
     Indication: Multiple sclerosis
     Route: 058

REACTIONS (4)
  - Insomnia [Not Recovered/Not Resolved]
  - Headache [Not Recovered/Not Resolved]
  - Injection site discolouration [Recovering/Resolving]
  - Hypoaesthesia [Not Recovered/Not Resolved]
